FAERS Safety Report 9098048 (Version 2)
Quarter: 2013Q1

REPORT INFORMATION
  Report Type: Spontaneous
  Country: FR (occurrence: FR)
  Receive Date: 20130212
  Receipt Date: 20130325
  Transmission Date: 20140127
  Serious: Yes (Hospitalization, Other)
  Sender: FDA-Public Use
  Company Number: FR-JNJFOC-20130201512

PATIENT
  Age: 80 Year
  Sex: Male

DRUGS (2)
  1. ZYTIGA [Suspect]
     Indication: PROSTATE CANCER
     Dosage: 1 G
     Route: 048
     Dates: start: 201207
  2. PREDNISOLONE [Suspect]
     Indication: PROSTATE CANCER
     Dosage: ^REGULAR DOSE^
     Route: 048

REACTIONS (3)
  - Cardiac failure [Unknown]
  - Malaise [Unknown]
  - Fall [Unknown]
